FAERS Safety Report 9342682 (Version 1)
Quarter: 2013Q2

REPORT INFORMATION
  Report Type: Spontaneous
  Country: US (occurrence: None)
  Receive Date: 20130607
  Receipt Date: 20130607
  Transmission Date: 20140414
  Serious: Yes (Hospitalization)
  Sender: FDA-Public Use
  Company Number: AUR-APL-2013-04540

PATIENT
  Age: 80 Year
  Sex: Male

DRUGS (4)
  1. OLANZAPINE (OLANZAPINE) [Suspect]
  2. INSULIN (INSULIN) [Concomitant]
  3. AMLODIPINE (AMLODIPINE) [Concomitant]
  4. ASPIRIN (ACETYLSALICYLIC ACID) [Concomitant]

REACTIONS (3)
  - Renal failure [None]
  - Hypothermia [None]
  - Respiratory distress [None]
